FAERS Safety Report 12984709 (Version 1)
Quarter: 2016Q4

REPORT INFORMATION
  Report Type: Spontaneous
  Country: FR (occurrence: FR)
  Receive Date: 20161129
  Receipt Date: 20161129
  Transmission Date: 20170207
  Serious: Yes (Death, Other)
  Sender: FDA-Public Use
  Company Number: FR-ABBVIE-16P-056-1793483-00

PATIENT
  Sex: Female

DRUGS (2)
  1. DEPAKINE CHRONO [Suspect]
     Active Substance: VALPROATE SODIUM
     Indication: MATERNAL EXPOSURE TIMING UNSPECIFIED
     Route: 064
  2. SYNTOCINON [Suspect]
     Active Substance: OXYTOCIN
     Indication: MATERNAL EXPOSURE TIMING UNSPECIFIED
     Route: 064

REACTIONS (6)
  - Bradycardia foetal [Fatal]
  - Hepatomegaly [Unknown]
  - Foetal exposure during pregnancy [Unknown]
  - Neonatal asphyxia [Unknown]
  - Convulsion neonatal [Unknown]
  - Nervous system disorder [Unknown]

NARRATIVE: CASE EVENT DATE: 19951013
